FAERS Safety Report 20902192 (Version 1)
Quarter: 2022Q2

REPORT INFORMATION
  Report Type: Spontaneous
  Country: US (occurrence: US)
  Receive Date: 20220601
  Receipt Date: 20220601
  Transmission Date: 20220721
  Serious: No
  Sender: FDA-Public Use
  Company Number: US-NOVARTISTESTPH-NVSC2022US126132

PATIENT
  Sex: Male
  Weight: 77.11 kg

DRUGS (1)
  1. BRIMONIDINE TARTRATE AND TIMOLOL MALEATE [Suspect]
     Active Substance: BRIMONIDINE TARTRATE\TIMOLOL MALEATE
     Indication: Glaucoma
     Dosage: 1 DRP, BID (IN EACH EYE)
     Route: 065

REACTIONS (5)
  - COVID-19 [Unknown]
  - Confusional state [Unknown]
  - Product container seal issue [Unknown]
  - Product availability issue [Unknown]
  - Product packaging quantity issue [Unknown]
